FAERS Safety Report 10201051 (Version 2)
Quarter: 2014Q2

REPORT INFORMATION
  Report Type: Spontaneous
  Country: US (occurrence: US)
  Receive Date: 20140528
  Receipt Date: 20140602
  Transmission Date: 20141212
  Serious: Yes (Hospitalization, Other)
  Sender: FDA-Public Use
  Company Number: US-SA-2014SA068231

PATIENT
  Age: 57 Year
  Sex: Male

DRUGS (1)
  1. LUMIZYME [Suspect]
     Indication: GLYCOGEN STORAGE DISEASE TYPE II
     Route: 042
     Dates: start: 20130912

REACTIONS (4)
  - Dyspnoea [Unknown]
  - Pulmonary embolism [Unknown]
  - Femur fracture [Unknown]
  - Fall [Unknown]
